FAERS Safety Report 19506148 (Version 1)
Quarter: 2021Q3

REPORT INFORMATION
  Report Type: Spontaneous
  Country: US (occurrence: US)
  Receive Date: 20210707
  Receipt Date: 20210707
  Transmission Date: 20211014
  Serious: Yes (Hospitalization, Other)
  Sender: FDA-Public Use
  Company Number: None

PATIENT
  Age: 85 Year
  Sex: Female

DRUGS (1)
  1. POMALYST [Suspect]
     Active Substance: POMALIDOMIDE
     Indication: PLASMA CELL MYELOMA
     Route: 048
     Dates: start: 20210604, end: 20210614

REACTIONS (6)
  - Diarrhoea [None]
  - Hypotension [None]
  - Tachycardia [None]
  - Septic shock [None]
  - Clostridium difficile infection [None]
  - Abdominal pain [None]

NARRATIVE: CASE EVENT DATE: 20210610
